FAERS Safety Report 21640784 (Version 2)
Quarter: 2024Q1

REPORT INFORMATION
  Report Type: Report from Study
  Country: US (occurrence: US)
  Receive Date: 20221125
  Receipt Date: 20240329
  Transmission Date: 20240409
  Serious: No
  Sender: FDA-Public Use
  Company Number: US-ABBVIE-4160754

PATIENT
  Sex: Female

DRUGS (1)
  1. HUMIRA [Suspect]
     Active Substance: ADALIMUMAB
     Indication: Rheumatoid arthritis
     Route: 058

REACTIONS (2)
  - Pruritus allergic [Unknown]
  - Urticaria [Unknown]
